FAERS Safety Report 22053422 (Version 1)
Quarter: 2023Q1

REPORT INFORMATION
  Report Type: Spontaneous
  Country: US (occurrence: None)
  Receive Date: 20230301
  Receipt Date: 20230301
  Transmission Date: 20230417
  Serious: Yes (Disabling, Other)
  Sender: FDA-Public Use
  Company Number: None

PATIENT
  Age: 46 Year
  Sex: Female
  Weight: 53.1 kg

DRUGS (1)
  1. ACID REDUCER [Suspect]
     Active Substance: ESOMEPRAZOLE MAGNESIUM
     Indication: Reflux laryngitis
     Dosage: OTHER QUANTITY : 1 TABLET(S);?FREQUENCY : AS NEEDED;?
     Route: 048
     Dates: start: 20230216, end: 20230301

REACTIONS (6)
  - Drug ineffective [None]
  - Tongue discomfort [None]
  - Throat irritation [None]
  - Tonsillitis [None]
  - Product substitution issue [None]
  - Suspected counterfeit product [None]

NARRATIVE: CASE EVENT DATE: 20230219
